FAERS Safety Report 20847484 (Version 2)
Quarter: 2022Q2

REPORT INFORMATION
  Report Type: Report from Study
  Country: US (occurrence: US)
  Receive Date: 20220519
  Receipt Date: 20220615
  Transmission Date: 20220721
  Serious: Yes (Other)
  Sender: FDA-Public Use
  Company Number: US-TAKEDA-2022TUS010289

PATIENT
  Sex: Male
  Weight: 95 kg

DRUGS (13)
  1. HUMAN IMMUNOGLOBULIN G [Suspect]
     Active Substance: HUMAN IMMUNOGLOBULIN G
     Indication: Immunodeficiency common variable
     Dosage: 12 GRAM, 1/WEEK
     Route: 058
     Dates: start: 20210603
  2. HUMAN IMMUNOGLOBULIN G [Suspect]
     Active Substance: HUMAN IMMUNOGLOBULIN G
     Indication: Immune system disorder
  3. DIPHENHYDRAMINE [Concomitant]
     Active Substance: DIPHENHYDRAMINE
  4. EPINEPHRINE [Concomitant]
     Active Substance: EPINEPHRINE
  5. ACETAMINOPHEN [Concomitant]
     Active Substance: ACETAMINOPHEN
  6. XARELTO [Concomitant]
     Active Substance: RIVAROXABAN
  7. VITAMINS [Concomitant]
     Active Substance: VITAMINS
  8. LIDOCAINE [Concomitant]
     Active Substance: LIDOCAINE
  9. Omega [Concomitant]
  10. DOXYCYCLINE HYCLATE [Concomitant]
     Active Substance: DOXYCYCLINE HYCLATE
  11. VALTREX [Concomitant]
     Active Substance: VALACYCLOVIR HYDROCHLORIDE
  12. PREDNISONE [Concomitant]
     Active Substance: PREDNISONE
  13. ALLOPURINOL [Concomitant]
     Active Substance: ALLOPURINOL

REACTIONS (5)
  - T-cell lymphoma [Unknown]
  - B-cell lymphoma [Unknown]
  - Herpes zoster [Unknown]
  - Staphylococcal infection [Unknown]
  - Therapy interrupted [Unknown]
